FAERS Safety Report 5168305-7 (Version None)
Quarter: 2006Q4

REPORT INFORMATION
  Report Type: 
  Country: None (occurrence: None)
  Receive Date: 20061201
  Receipt Date: 20061122
  Transmission Date: 20070319
  Serious: Yes (Other)
  Sender: FDA-Public Use
  Company Number: A-JP2006-13677

PATIENT
  Age: 37 Year
  Sex: Female

DRUGS (7)
  1. TRACLEER [Suspect]
     Indication: PULMONARY HYPERTENSION
     Dosage: SEE IMAGE
     Route: 048
     Dates: start: 20060706, end: 20060727
  2. TRACLEER [Suspect]
     Indication: PULMONARY HYPERTENSION
     Dosage: SEE IMAGE
     Route: 048
     Dates: start: 20060907
  3. BERAPROST SODIUM [Concomitant]
  4. WARFARIN SODIUM [Concomitant]
  5. OXYGEN [Concomitant]
  6. CEFACLOR (CEFACLOR MONOHYDRATE) [Concomitant]
  7. CEFCAPENE PIVOXIL HYDROCHLORIDE [Concomitant]

REACTIONS (7)
  - ABORTION INDUCED [None]
  - ALANINE AMINOTRANSFERASE INCREASED [None]
  - ASPARTATE AMINOTRANSFERASE INCREASED [None]
  - BLOOD ALKALINE PHOSPHATASE INCREASED [None]
  - DRUG EXPOSURE DURING PREGNANCY [None]
  - HEPATIC ENZYME INCREASED [None]
  - UNINTENDED PREGNANCY [None]
